FAERS Safety Report 16883036 (Version 2)
Quarter: 2020Q1

REPORT INFORMATION
  Report Type: Spontaneous
  Country: IT (occurrence: IT)
  Receive Date: 20191004
  Receipt Date: 20200215
  Transmission Date: 20200409
  Serious: Yes (Other)
  Sender: FDA-Public Use
  Company Number: IT-SUN PHARMACEUTICAL INDUSTRIES LTD-2019RR-222529

PATIENT
  Age: 60 Year
  Sex: Male

DRUGS (4)
  1. INHIXA 10,000 IU (100 MG)/1 ML SOLUTION FOR INJECTION [Concomitant]
     Indication: PRODUCT USED FOR UNKNOWN INDICATION
     Route: 065
  2. OXALIPLATIN. [Suspect]
     Active Substance: OXALIPLATIN
     Indication: ADENOCARCINOMA
     Dosage: ()
     Route: 017
     Dates: start: 20180828, end: 20190702
  3. FLUOROURACIL. [Suspect]
     Active Substance: FLUOROURACIL
     Indication: ADENOCARCINOMA
     Dosage: ()
     Route: 042
  4. PLASIL [Concomitant]
     Active Substance: METOCLOPRAMIDE HYDROCHLORIDE
     Indication: NAUSEA
     Dosage: ()
     Route: 065

REACTIONS (5)
  - Leukopenia [Unknown]
  - Nausea [Unknown]
  - Decreased appetite [Unknown]
  - Thrombocytopenia [Unknown]
  - Paraesthesia [Unknown]

NARRATIVE: CASE EVENT DATE: 20180930
